FAERS Safety Report 15980201 (Version 3)
Quarter: 2019Q2

REPORT INFORMATION
  Report Type: Spontaneous
  Country: US (occurrence: US)
  Receive Date: 20190219
  Receipt Date: 20190415
  Transmission Date: 20190711
  Serious: Yes (Death, Other)
  Sender: FDA-Public Use
  Company Number: US-ASTRAZENECA-2018SF66241

PATIENT
  Sex: Male

DRUGS (23)
  1. PRILOSEC [Suspect]
     Active Substance: OMEPRAZOLE MAGNESIUM
     Route: 048
     Dates: start: 2004, end: 2015
  2. CEPHALEXIN. [Concomitant]
     Active Substance: CEPHALEXIN
     Dates: start: 20080920
  3. NEXIUM [Suspect]
     Active Substance: ESOMEPRAZOLE MAGNESIUM
     Route: 048
     Dates: start: 20090830
  4. PREVACID 24 HR [Suspect]
     Active Substance: LANSOPRAZOLE
     Route: 065
     Dates: start: 2004, end: 2015
  5. AZITHROMYCIN ANHYDROUS. [Concomitant]
     Active Substance: AZITHROMYCIN ANHYDROUS
  6. NEXIUM 24HR [Suspect]
     Active Substance: ESOMEPRAZOLE MAGNESIUM
     Route: 048
     Dates: start: 2004, end: 2015
  7. PRILOSEC OTC [Suspect]
     Active Substance: OMEPRAZOLE MAGNESIUM
     Route: 048
     Dates: start: 20071014
  8. DICYCLOMINE [Concomitant]
     Active Substance: DICYCLOMINE HYDROCHLORIDE
  9. AMOXICILLIN. [Concomitant]
     Active Substance: AMOXICILLIN
     Dates: start: 20080915
  10. METOPROLOL. [Concomitant]
     Active Substance: METOPROLOL
     Dates: start: 20080920
  11. NEXIUM [Suspect]
     Active Substance: ESOMEPRAZOLE MAGNESIUM
     Route: 048
     Dates: start: 2004, end: 2015
  12. PREVACID [Suspect]
     Active Substance: LANSOPRAZOLE
     Route: 065
     Dates: start: 2004, end: 2015
  13. AMLODIPINE [Concomitant]
     Active Substance: AMLODIPINE BESYLATE
  14. TRAMADOL. [Concomitant]
     Active Substance: TRAMADOL
     Dates: start: 20080920
  15. TRAMADOL. [Concomitant]
     Active Substance: TRAMADOL
  16. PRILOSEC OTC [Suspect]
     Active Substance: OMEPRAZOLE MAGNESIUM
     Route: 048
     Dates: start: 2004, end: 2015
  17. METOPROLOL. [Concomitant]
     Active Substance: METOPROLOL
  18. DIPHENOXYLATE [Concomitant]
     Active Substance: DIPHENOXYLATE
  19. PLAVIX [Concomitant]
     Active Substance: CLOPIDOGREL BISULFATE
  20. AMOXICILLIN. [Concomitant]
     Active Substance: AMOXICILLIN
  21. NEXIUM [Suspect]
     Active Substance: ESOMEPRAZOLE MAGNESIUM
     Route: 048
     Dates: start: 20071014
  22. CYMBALTA [Concomitant]
     Active Substance: DULOXETINE HYDROCHLORIDE
     Dates: start: 20080915
  23. TEMAZEPAM. [Concomitant]
     Active Substance: TEMAZEPAM
     Dates: start: 20080915

REACTIONS (5)
  - Chronic kidney disease [Not Recovered/Not Resolved]
  - Rebound acid hypersecretion [Unknown]
  - Renal injury [Unknown]
  - Death [Fatal]
  - Renal failure [Unknown]
